FAERS Safety Report 4783701-5 (Version None)
Quarter: 2005Q3

REPORT INFORMATION
  Report Type: 
  Country: None (occurrence: None)
  Receive Date: 20050928
  Receipt Date: 20050916
  Transmission Date: 20060218
  Serious: Yes (Other)
  Sender: FDA-Public Use
  Company Number: 2005130390

PATIENT
  Age: 70 Year
  Sex: Male

DRUGS (3)
  1. ATORVASTATIN CALCIUM [Suspect]
     Indication: HYPERCHOLESTEROLAEMIA
     Dosage: 40 MG (DAILY
     Dates: end: 20050915
  2. ENALAPRIL MALEATE [Concomitant]
  3. ASPEGIC 1000 [Concomitant]

REACTIONS (2)
  - GAIT DISTURBANCE [None]
  - MUSCLE RUPTURE [None]
